FAERS Safety Report 5738656-3 (Version None)
Quarter: 2008Q2

REPORT INFORMATION
  Report Type: 
  Country: None (occurrence: None)
  Receive Date: 20080513
  Receipt Date: 20080513
  Transmission Date: 20081010
  Serious: No
  Sender: FDA-Public Use
  Company Number: None

PATIENT

DRUGS (1)
  1. SINGULAIR [Suspect]

REACTIONS (9)
  - AFFECT LABILITY [None]
  - ANXIETY [None]
  - AUTISM SPECTRUM DISORDER [None]
  - COORDINATION ABNORMAL [None]
  - MUSCULAR WEAKNESS [None]
  - OVERWEIGHT [None]
  - PERSONALITY DISORDER [None]
  - SLEEP TERROR [None]
  - SPEECH DISORDER [None]
